FAERS Safety Report 17193529 (Version 3)
Quarter: 2020Q1

REPORT INFORMATION
  Report Type: Report from Study
  Country: JP (occurrence: JP)
  Receive Date: 20191223
  Receipt Date: 20200207
  Transmission Date: 20200409
  Serious: Yes (Hospitalization, Other)
  Sender: FDA-Public Use
  Company Number: JP-GILEAD-2019-0443349

PATIENT
  Age: 42 Year
  Sex: Male
  Weight: 66 kg

DRUGS (23)
  1. MAGMITT [Concomitant]
     Active Substance: MAGNESIUM OXIDE
     Indication: DISEASE COMPLICATION
     Route: 048
  2. POLAPREZINC [Concomitant]
     Active Substance: POLAPREZINC
     Indication: HEPATITIS C
     Route: 048
  3. ADVATE [Concomitant]
     Active Substance: ANTIHEMOPHILIC FACTOR, HUMAN RECOMBINANT
     Indication: DISEASE COMPLICATION
     Dosage: UNK
     Route: 042
  4. GLYCYRON [DL-METHIONINE;GLYCINE;GLYCYRRHIZIC ACID, AMMONIUM SALT] [Concomitant]
     Indication: HEPATITIS C
     Route: 048
  5. SOFOSBUVIR W/VELPATASVIR [Suspect]
     Active Substance: SOFOSBUVIR\VELPATASVIR
     Indication: HEPATITIS C
  6. SODIUM BICARBONATE. [Concomitant]
     Active Substance: SODIUM BICARBONATE
     Indication: DISEASE COMPLICATION
     Dosage: UNK
     Route: 048
  7. HEPAACT [Concomitant]
     Indication: HEPATITIS C
     Route: 048
  8. SOFOSBUVIR W/VELPATASVIR [Suspect]
     Active Substance: SOFOSBUVIR\VELPATASVIR
     Indication: HEPATIC CIRRHOSIS
     Dosage: 1 DOSAGE FORM, QD
     Route: 048
     Dates: start: 20190725, end: 20191017
  9. ETIZOLAM [Concomitant]
     Active Substance: ETIZOLAM
     Indication: DISEASE COMPLICATION
     Route: 048
  10. TAKECAB [Concomitant]
     Active Substance: VONOPRAZAN FUMURATE
     Indication: DISEASE COMPLICATION
     Route: 048
  11. RIFXIMA [Concomitant]
     Active Substance: RIFAXIMIN
     Indication: HEPATITIS C
     Route: 048
  12. HEMLIBRA [Concomitant]
     Active Substance: EMICIZUMAB-KXWH
     Indication: DISEASE COMPLICATION
     Dosage: UNK
     Route: 042
  13. ISENTRESS [Concomitant]
     Active Substance: RALTEGRAVIR POTASSIUM
     Indication: DISEASE COMPLICATION
     Route: 048
  14. FUROSEMIDE. [Concomitant]
     Active Substance: FUROSEMIDE
     Indication: HEPATITIS C
     Route: 048
  15. REBAMIPIDE [Concomitant]
     Active Substance: REBAMIPIDE
     Indication: DISEASE COMPLICATION
     Route: 048
  16. SPIRONOLACTONE. [Concomitant]
     Active Substance: SPIRONOLACTONE
     Indication: HEPATITIS C
     Route: 048
  17. EMTRICITABINE/TENOFOVIR ALAFENAMIDE [Suspect]
     Active Substance: EMTRICITABINE\TENOFOVIR
     Indication: HIV INFECTION
     Dosage: UNK
     Route: 048
  18. FEXOFENADINE HYDROCHLORIDE. [Concomitant]
     Active Substance: FEXOFENADINE HYDROCHLORIDE
     Indication: DISEASE COMPLICATION
     Route: 048
  19. LAXOBERON [Concomitant]
     Active Substance: SODIUM PICOSULFATE
     Indication: DISEASE COMPLICATION
     Route: 048
  20. PIARLE [Concomitant]
     Active Substance: LACTULOSE
     Indication: HEPATITIS C
     Route: 048
  21. E KEPPRA [Concomitant]
     Active Substance: LEVETIRACETAM
     Indication: DISEASE COMPLICATION
     Dosage: UNK
     Route: 048
  22. URSODEOXYCHOLIC ACID [Concomitant]
     Active Substance: URSODIOL
     Indication: HEPATITIS C
     Route: 048
  23. L CARTIN [Concomitant]
     Active Substance: LEVOCARNITINE HYDROCHLORIDE
     Indication: HEPATITIS C
     Route: 048

REACTIONS (3)
  - Intra-abdominal haemorrhage [Recovering/Resolving]
  - Drug ineffective [Unknown]
  - Hepatitis C [Unknown]

NARRATIVE: CASE EVENT DATE: 20190902
